FAERS Safety Report 24351172 (Version 1)
Quarter: 2024Q3

REPORT INFORMATION
  Report Type: Report from Study
  Country: CY (occurrence: CY)
  Receive Date: 20240923
  Receipt Date: 20240923
  Transmission Date: 20241017
  Serious: No
  Sender: ROCHE
  Company Number: CY-ROCHE-2682855

PATIENT
  Age: 68 Year
  Sex: Female
  Weight: 64.0 kg

DRUGS (21)
  1. HERCEPTIN [Suspect]
     Active Substance: TRASTUZUMAB
     Indication: HER2 positive breast cancer
     Dosage: DATE OF MOST RECENT DOSE: 04/JUL/2018
     Route: 041
     Dates: start: 20160830
  2. KADCYLA [Suspect]
     Active Substance: ADO-TRASTUZUMAB EMTANSINE
     Indication: HER2 positive breast cancer
     Route: 042
     Dates: start: 20210422
  3. FEMARA [Suspect]
     Active Substance: LETROZOLE
     Indication: HER2 positive breast cancer
     Dosage: MOST RECENT DOSE OF LETROZOLE WAS ON 04/JUL/2018
     Route: 048
     Dates: start: 20170201
  4. TYKERB [Suspect]
     Active Substance: LAPATINIB DITOSYLATE
     Indication: HER2 positive breast cancer
     Dosage: MOST RECENT DOSE ON 08/APR/2021
     Route: 048
     Dates: start: 20180727
  5. TAXOL [Suspect]
     Active Substance: PACLITAXEL
     Indication: HER2 positive breast cancer
     Dosage: MOST RECENT DOSE PRIOR TO EVENT 11/JAN/2017
     Route: 042
     Dates: start: 20160823
  6. XELODA [Suspect]
     Active Substance: CAPECITABINE
     Indication: HER2 positive breast cancer
     Dosage: DATE OF MOST RECENT DOSE: 08/APR/2021
     Route: 048
     Dates: start: 20180704
  7. FUCIDIN [Concomitant]
     Active Substance: FUSIDATE SODIUM
     Indication: Paronychia
     Dosage: ONGOING = CHECKED
     Dates: start: 20191206, end: 20211018
  8. COMIRNATY [Concomitant]
     Dates: start: 20210720, end: 20210720
  9. PFIZER-BIONTECH COVID-19 VACCINE [Concomitant]
     Active Substance: TOZINAMERAN
     Dates: start: 20210720, end: 20210720
  10. GLUCOPHAGE [Concomitant]
     Active Substance: METFORMIN HYDROCHLORIDE
     Dosage: ONGOING = CHECKED
     Dates: start: 20141215
  11. DEXPANTHENOL [Concomitant]
     Active Substance: DEXPANTHENOL
     Dates: start: 20190525
  12. BISOPROLOL FUMARATE [Concomitant]
     Active Substance: BISOPROLOL FUMARATE
     Dates: start: 20141215
  13. RAMIPRIL [Concomitant]
     Active Substance: RAMIPRIL
     Dosage: ONGOING = NOT CHECKED
     Dates: start: 20141215, end: 20180827
  14. LEVOTHYROXINE [Concomitant]
     Active Substance: LEVOTHYROXINE\LEVOTHYROXINE SODIUM
     Dates: start: 20141215
  15. CLORAMBUCILE [Concomitant]
     Dates: start: 20161101, end: 20170429
  16. AMLODIPINE [Concomitant]
     Active Substance: AMLODIPINE BESYLATE
     Dates: start: 20141215
  17. ZOLEDRONIC ACID [Concomitant]
     Active Substance: ZOLEDRONIC ACID
     Dosage: ONGOING = CHECKED
     Dates: start: 20160913, end: 20181212
  18. DENOSUMAB [Concomitant]
     Active Substance: DENOSUMAB
     Dosage: ONGOING = CHECKED
     Dates: start: 20190207
  19. FUSICORT [Concomitant]
     Indication: Paronychia
     Dosage: ONGOING = CHECKED
     Dates: start: 20210806, end: 20211118
  20. FUSICORT [Concomitant]
     Dosage: ONGOING = CHECKED
     Dates: start: 20211210, end: 20220511
  21. BEPANTHOL [Concomitant]
     Dosage: ONGOING = CHECKED
     Dates: start: 20190525

REACTIONS (25)
  - Fatigue [Recovered/Resolved]
  - Palmar-plantar erythrodysaesthesia syndrome [Recovered/Resolved]
  - Paronychia [Recovered/Resolved]
  - Fatigue [Recovered/Resolved]
  - Cough [Recovered/Resolved]
  - Hypersensitivity [Recovered/Resolved]
  - Influenza like illness [Recovered/Resolved]
  - Paronychia [Recovered/Resolved]
  - Fatigue [Recovered/Resolved]
  - Arthralgia [Recovered/Resolved]
  - Rash [Recovered/Resolved]
  - Arthralgia [Recovered/Resolved]
  - Dry skin [Recovered/Resolved]
  - Anxiety [Not Recovered/Not Resolved]
  - Vertigo [Recovered/Resolved]
  - Dry skin [Not Recovered/Not Resolved]
  - Fatigue [Recovered/Resolved]
  - Onychomadesis [Recovered/Resolved]
  - Diarrhoea [Recovered/Resolved]
  - Rash [Recovered/Resolved]
  - Neuropathy peripheral [Recovered/Resolved]
  - Fatigue [Recovered/Resolved]
  - Nausea [Recovered/Resolved]
  - Cough [Recovered/Resolved]
  - Fatigue [Recovered/Resolved]

NARRATIVE: CASE EVENT DATE: 20170104
